FAERS Safety Report 24952879 (Version 3)
Quarter: 2025Q1

REPORT INFORMATION
  Report Type: Report from Study
  Country: IN (occurrence: IN)
  Receive Date: 20250211
  Receipt Date: 20250225
  Transmission Date: 20250409
  Serious: Yes (Death, Hospitalization)
  Sender: SANDOZ
  Company Number: IN-002147023-NVSC2024IN151709

PATIENT
  Age: 59 Year
  Sex: Female
  Weight: 57 kg

DRUGS (11)
  1. FULVESTRANT [Suspect]
     Active Substance: FULVESTRANT
     Indication: Breast cancer metastatic
     Route: 030
     Dates: start: 20240622, end: 20240706
  2. PIOGLITAZONE HYDROCHLORIDE [Suspect]
     Active Substance: PIOGLITAZONE HYDROCHLORIDE
     Indication: Type 2 diabetes mellitus
     Dosage: 30 MG, QD
     Route: 048
     Dates: start: 20240706, end: 20240718
  3. AMLODIPINE [Concomitant]
     Active Substance: AMLODIPINE BESYLATE
     Indication: Surgery
     Dosage: 5 MG, QD
     Route: 048
     Dates: start: 201201
  4. Domstal [Concomitant]
     Indication: Adverse event
     Route: 048
     Dates: start: 20240623
  5. METFORMIN HYDROCHLORIDE [Concomitant]
     Active Substance: METFORMIN HYDROCHLORIDE
     Indication: Surgery
     Dosage: 500 MG, BID
     Route: 048
     Dates: start: 202001, end: 20240129
  6. INSUGEN [Concomitant]
     Indication: Adverse event
     Route: 058
     Dates: start: 20240718
  7. LEVOFLOXACIN [Concomitant]
     Active Substance: LEVOFLOXACIN
     Indication: Adverse event
     Dosage: 500 MG, QD
     Route: 048
     Dates: start: 20240626, end: 20240705
  8. LOPERAMIDE [Concomitant]
     Active Substance: LOPERAMIDE
     Indication: Adverse event
     Route: 048
     Dates: start: 20240626, end: 20240628
  9. METFORMIN [Concomitant]
     Active Substance: METFORMIN HYDROCHLORIDE
     Indication: Adverse event
     Dosage: 1000 MG, BID
     Route: 048
     Dates: start: 20240629
  10. ONDEM [Concomitant]
     Indication: Adverse event
     Route: 048
     Dates: start: 20240623
  11. LEVOTHYROXINE [Concomitant]
     Active Substance: LEVOTHYROXINE
     Indication: Surgery
     Dosage: 100 UG, QD
     Route: 048
     Dates: start: 199801

REACTIONS (4)
  - Dyspnoea [Fatal]
  - Cardio-respiratory arrest [Fatal]
  - Acute kidney injury [Fatal]
  - Hypoxia [Fatal]

NARRATIVE: CASE EVENT DATE: 20240722
